FAERS Safety Report 4829904-2 (Version None)
Quarter: 2005Q4

REPORT INFORMATION
  Report Type: 
  Country: None (occurrence: None)
  Receive Date: 20051115
  Receipt Date: 20051115
  Transmission Date: 20060501
  Serious: Yes (Life-Threatening)
  Sender: FDA-Public Use
  Company Number: None

PATIENT
  Age: 26 Year
  Sex: Male
  Weight: 65.7716 kg

DRUGS (1)
  1. PAXIL [Suspect]
     Indication: HEAD INJURY
     Dosage: DAILY  PO
     Route: 048
     Dates: start: 20000101, end: 20050801

REACTIONS (1)
  - SUICIDE ATTEMPT [None]
